FAERS Safety Report 8173286-8 (Version None)
Quarter: 2012Q1

REPORT INFORMATION
  Report Type: 
  Country: None (occurrence: None)
  Receive Date: 20120229
  Receipt Date: 20120220
  Transmission Date: 20120608
  Serious: Yes (Hospitalization)
  Sender: FDA-Public Use
  Company Number: SG-MPIJNJ-2011-04971

PATIENT

DRUGS (4)
  1. VELCADE [Suspect]
     Indication: ANAPLASTIC LARGE CELL LYMPHOMA T- AND NULL-CELL TYPES
     Dosage: 2.2 MG, CYCLIC
     Route: 042
     Dates: start: 20111014, end: 20111121
  2. VELCADE [Suspect]
     Dosage: 2.1 MG, UNK
     Route: 042
     Dates: start: 20111121
  3. PANOBINOSTAT [Suspect]
     Dosage: 15 MG, UNK
     Route: 048
     Dates: start: 20111122
  4. PANOBINOSTAT [Suspect]
     Indication: ANAPLASTIC LARGE CELL LYMPHOMA T- AND NULL-CELL TYPES
     Dosage: 20 MG, CYCLIC
     Route: 048
     Dates: start: 20111014, end: 20111122

REACTIONS (11)
  - BACILLUS TEST POSITIVE [None]
  - INGUINAL HERNIA REPAIR [None]
  - MASS [None]
  - LAPAROTOMY [None]
  - CLOSTRIDIUM TEST POSITIVE [None]
  - INTESTINAL PERFORATION [None]
  - BACTERAEMIA [None]
  - BLOOD CREATININE INCREASED [None]
  - ABSCESS INTESTINAL [None]
  - PYREXIA [None]
  - VOMITING [None]
